FAERS Safety Report 5672903-1 (Version None)
Quarter: 2008Q1

REPORT INFORMATION
  Report Type: 
  Country: None (occurrence: None)
  Receive Date: 20080319
  Receipt Date: 20071210
  Transmission Date: 20080703
  Serious: No
  Sender: FDA-Public Use
  Company Number: US-ASTRAZENECA-2007UW28119

PATIENT
  Age: 49 Year
  Sex: Male
  Weight: 88.5 kg

DRUGS (4)
  1. SYMBICORT [Suspect]
     Indication: ASTHMA
     Dosage: TWO PUFFS TWICE A DAY
     Route: 055
     Dates: start: 20071101
  2. FLUTICASONE INHALER [Concomitant]
  3. PRILOSEC OTC [Concomitant]
     Route: 048
  4. CLARITIN [Concomitant]

REACTIONS (2)
  - INSOMNIA [None]
  - STOMACH DISCOMFORT [None]
